FAERS Safety Report 12846357 (Version 1)
Quarter: 2016Q4

REPORT INFORMATION
  Report Type: Spontaneous
  Country: US (occurrence: US)
  Receive Date: 20161014
  Receipt Date: 20161014
  Transmission Date: 20170207
  Serious: Yes (Other)
  Sender: FDA-Public Use
  Company Number: US-THROMBOGENICS NV-SPO-2016-2177

PATIENT
  Sex: Female

DRUGS (1)
  1. JETREA [Suspect]
     Active Substance: OCRIPLASMIN
     Indication: VITREOUS ADHESIONS
     Dosage: 0.125 MG, ONE TIME DOSE
     Route: 031
     Dates: start: 20160419, end: 20160419

REACTIONS (5)
  - Visual acuity reduced [Not Recovered/Not Resolved]
  - Vitreous floaters [Not Recovered/Not Resolved]
  - Subretinal fluid [Not Recovered/Not Resolved]
  - Photopsia [Not Recovered/Not Resolved]
  - Retinal injury [Not Recovered/Not Resolved]

NARRATIVE: CASE EVENT DATE: 20160419
